FAERS Safety Report 19196586 (Version 2)
Quarter: 2021Q2

REPORT INFORMATION
  Report Type: Spontaneous
  Country: US (occurrence: US)
  Receive Date: 20210429
  Receipt Date: 20210622
  Transmission Date: 20210717
  Serious: Yes (Life-Threatening, Hospitalization)
  Sender: FDA-Public Use
  Company Number: US-TEVA-2021-US-1904618

PATIENT
  Age: 19 Year
  Sex: Female

DRUGS (3)
  1. DEFERASIROX. [Suspect]
     Active Substance: DEFERASIROX
     Indication: CHELATION THERAPY
  2. HYDROXYCHLOROQUINE [Suspect]
     Active Substance: HYDROXYCHLOROQUINE
     Indication: COVID-19
     Route: 065
  3. DEFERASIROX. [Suspect]
     Active Substance: DEFERASIROX
     Indication: IRON OVERLOAD
     Dosage: 1800 MILLIGRAM DAILY;
     Route: 065

REACTIONS (7)
  - Drug-induced liver injury [Recovering/Resolving]
  - Hepatic failure [Recovering/Resolving]
  - Shock [Recovering/Resolving]
  - Hepatic encephalopathy [Recovering/Resolving]
  - Off label use [Unknown]
  - Cytotoxic oedema [Unknown]
  - Multiple organ dysfunction syndrome [Recovered/Resolved]
